FAERS Safety Report 8805956 (Version 1)
Quarter: 2012Q4

REPORT INFORMATION
  Report Type: Spontaneous
  Country: US (occurrence: None)
  Receive Date: 20120917
  Receipt Date: 20120917
  Transmission Date: 20130627
  Serious: Yes (Disabling, Other)
  Sender: FDA-Public Use
  Company Number: 2012P1056316

PATIENT
  Age: 15 Year
  Sex: Male

DRUGS (2)
  1. PREDNISONE [Suspect]
  2. AUGMENTIN [Suspect]
     Indication: SINUSITIS

REACTIONS (8)
  - Renal impairment [None]
  - Tumour lysis syndrome [None]
  - Stem cell transplant [None]
  - VIIth nerve paralysis [None]
  - Haematemesis [None]
  - Hepatosplenomegaly [None]
  - Blindness [None]
  - T-cell type acute leukaemia [None]
